FAERS Safety Report 8494232-3 (Version None)
Quarter: 2012Q3

REPORT INFORMATION
  Report Type: 
  Country: None (occurrence: None)
  Receive Date: 20120709
  Receipt Date: 20120703
  Transmission Date: 20120928
  Serious: Yes (Other)
  Sender: FDA-Public Use
  Company Number: PHHY2012JP057868

PATIENT
  Age: 83 Year
  Sex: Female

DRUGS (2)
  1. RIVASTIGMINE [Suspect]
     Indication: DEMENTIA ALZHEIMER'S TYPE
     Dosage: 18 MG, QD
     Route: 062
     Dates: start: 20120201, end: 20120501
  2. ELNEOPA NO.2 [Concomitant]
     Dates: start: 20120128

REACTIONS (1)
  - HEPATIC FUNCTION ABNORMAL [None]
